FAERS Safety Report 5719418-X (Version None)
Quarter: 2008Q2

REPORT INFORMATION
  Report Type: 
  Country: None (occurrence: None)
  Receive Date: 20080428
  Receipt Date: 20080416
  Transmission Date: 20081010
  Serious: Yes (Other)
  Sender: FDA-Public Use
  Company Number: PHHY2008BR05951

PATIENT
  Age: 57 Year
  Sex: Female

DRUGS (8)
  1. GALVUS MET [Suspect]
     Indication: DIABETES MELLITUS
     Dosage: 850/100 MG TWICE DAILY
     Route: 048
     Dates: end: 20080414
  2. SYNTHROID [Concomitant]
     Dates: start: 20070101, end: 20080414
  3. LIPLESS [Concomitant]
     Dates: start: 20070101, end: 20080414
  4. VENALOT [Concomitant]
     Dosage: 1 DF, Q12H
     Dates: start: 20070101, end: 20080414
  5. LASIX [Concomitant]
     Indication: HYPERTENSION
  6. AMLOVASC [Concomitant]
     Indication: HYPERTENSION
  7. ATENOLOL [Concomitant]
     Indication: HYPERTENSION
  8. EXFORGE [Suspect]
     Indication: HYPERTENSION
     Dosage: 160/5 MG DAILY
     Route: 048
     Dates: start: 20080414

REACTIONS (11)
  - ABDOMINAL PAIN UPPER [None]
  - ASTHENIA [None]
  - BACK PAIN [None]
  - FAECES DISCOLOURED [None]
  - FATIGUE [None]
  - FEELING ABNORMAL [None]
  - HEPATITIS [None]
  - ORAL INTAKE REDUCED [None]
  - PALLOR [None]
  - SOMNOLENCE [None]
  - YELLOW SKIN [None]
